FAERS Safety Report 6694946-1 (Version None)
Quarter: 2010Q2

REPORT INFORMATION
  Report Type: 
  Country: None (occurrence: None)
  Receive Date: 20100423
  Receipt Date: 20100412
  Transmission Date: 20101027
  Serious: Yes (Death, Hospitalization)
  Sender: FDA-Public Use
  Company Number: RU-GENENTECH-300500

PATIENT
  Sex: Female

DRUGS (2)
  1. RITUXIMAB [Suspect]
     Indication: RHEUMATOID ARTHRITIS
     Dosage: 1000 MG, Q2W
     Route: 042
     Dates: start: 20091005, end: 20091001
  2. RITUXIMAB [Suspect]
     Dosage: UNK
     Route: 042
     Dates: end: 20100325

REACTIONS (1)
  - OVARIAN EPITHELIAL CANCER [None]
